FAERS Safety Report 8531955 (Version 3)
Quarter: 2014Q1

REPORT INFORMATION
  Report Type: Spontaneous
  Country: US (occurrence: US)
  Receive Date: 20120426
  Receipt Date: 20140108
  Transmission Date: 20141002
  Serious: Yes (Hospitalization, Other)
  Sender: FDA-Public Use
  Company Number: US-ROCHE-1062654

PATIENT
  Age: 37 Year
  Sex: Female
  Weight: 74.91 kg

DRUGS (1)
  1. ACCUTANE [Suspect]
     Indication: ACNE
     Route: 065
     Dates: start: 20050105, end: 20090607

REACTIONS (9)
  - Injury [Unknown]
  - Crohn^s disease [Unknown]
  - Depression [Unknown]
  - Bipolar disorder [Unknown]
  - Intestinal obstruction [Unknown]
  - Inflammatory bowel disease [Unknown]
  - Osteoarthritis [Unknown]
  - Hernia [Unknown]
  - Hypertension [Unknown]
